FAERS Safety Report 11821791 (Version 3)
Quarter: 2016Q4

REPORT INFORMATION
  Report Type: Spontaneous
  Country: US (occurrence: US)
  Receive Date: 20151210
  Receipt Date: 20161017
  Transmission Date: 20170206
  Serious: No
  Sender: FDA-Public Use
  Company Number: US-JNJFOC-20150716847

PATIENT
  Sex: Male

DRUGS (9)
  1. IMBRUVICA [Suspect]
     Active Substance: IBRUTINIB
     Indication: CHRONIC LYMPHOCYTIC LEUKAEMIA
     Route: 048
     Dates: start: 20150214
  2. FUROSEMIDE. [Concomitant]
     Active Substance: FUROSEMIDE
  3. KLOR-CON [Concomitant]
     Active Substance: POTASSIUM CHLORIDE
  4. FLOMAX [Concomitant]
     Active Substance: TAMSULOSIN HYDROCHLORIDE
  5. LASIX [Concomitant]
     Active Substance: FUROSEMIDE
  6. ALLOPURINOL. [Concomitant]
     Active Substance: ALLOPURINOL
  7. POTASSIUM [Concomitant]
     Active Substance: POTASSIUM
  8. FERROUS SULFATE. [Concomitant]
     Active Substance: FERROUS SULFATE
  9. IRON [Concomitant]
     Active Substance: IRON

REACTIONS (10)
  - Tenderness [Unknown]
  - Bowel movement irregularity [Recovered/Resolved]
  - Contusion [Unknown]
  - Muscular weakness [Unknown]
  - Hypoaesthesia [Unknown]
  - Skin ulcer [Unknown]
  - Impaired healing [Unknown]
  - Pruritus generalised [Unknown]
  - Blood urine present [Unknown]
  - Rash [Not Recovered/Not Resolved]

NARRATIVE: CASE EVENT DATE: 2015
